FAERS Safety Report 16021670 (Version 3)
Quarter: 2019Q3

REPORT INFORMATION
  Report Type: Spontaneous
  Country: FR (occurrence: FR)
  Receive Date: 20190301
  Receipt Date: 20190712
  Transmission Date: 20191004
  Serious: Yes (Death, Hospitalization)
  Sender: FDA-Public Use
  Company Number: FR-ACCORD-109753

PATIENT
  Age: 67 Year
  Sex: Male
  Weight: 80 kg

DRUGS (2)
  1. IRINOTECAN [Suspect]
     Active Substance: IRINOTECAN
     Indication: ADENOCARCINOMA OF COLON
     Route: 058
     Dates: start: 20171004
  2. VECTIBIX [Suspect]
     Active Substance: PANITUMUMAB
     Indication: ADENOCARCINOMA OF COLON
     Dosage: STRENGTH: 20 MG/ML
     Route: 058
     Dates: start: 20171004

REACTIONS (5)
  - Hypocalcaemia [Recovered/Resolved]
  - Atrial fibrillation [Recovered/Resolved]
  - Mucosal inflammation [Not Recovered/Not Resolved]
  - Staphylococcal skin infection [Recovered/Resolved]
  - Hypomagnesaemia [Recovered/Resolved]

NARRATIVE: CASE EVENT DATE: 20171008
